FAERS Safety Report 18155169 (Version 1)
Quarter: 2020Q3

REPORT INFORMATION
  Report Type: Spontaneous
  Country: US (occurrence: US)
  Receive Date: 20200814
  Receipt Date: 20200814
  Transmission Date: 20201103
  Serious: Yes (Other)
  Sender: FDA-Public Use
  Company Number: None

PATIENT
  Age: 46 Year
  Sex: Female

DRUGS (1)
  1. AROUSAL CREAM [AMINOPHYLLINE\ARGININE\ERGOLOID MESYLATES\PENTOXIFYLLINE\SILDENAFIL\TESTOSTERONE] [Suspect]
     Active Substance: AMINOPHYLLINE\ARGININE\ERGOLOID MESYLATES\PENTOXIFYLLINE\SILDENAFIL\TESTOSTERONE
     Indication: LIBIDO DECREASED

REACTIONS (6)
  - Genital pain [None]
  - Application site erythema [None]
  - Application site irritation [None]
  - Genital burning sensation [None]
  - Dermatitis allergic [None]
  - Application site swelling [None]

NARRATIVE: CASE EVENT DATE: 20200810
